FAERS Safety Report 25015711 (Version 1)
Quarter: 2025Q1

REPORT INFORMATION
  Report Type: Spontaneous
  Country: JP (occurrence: JP)
  Receive Date: 20250227
  Receipt Date: 20250227
  Transmission Date: 20250408
  Serious: Yes (Life-Threatening, Hospitalization, Other)
  Sender: UNICHEM
  Company Number: JP-UNICHEM LABORATORIES LIMITED-UNI-2025-JP-001362

PATIENT

DRUGS (2)
  1. LACOSAMIDE [Suspect]
     Active Substance: LACOSAMIDE
     Indication: Partial seizures
     Route: 065
  2. LACOSAMIDE [Suspect]
     Active Substance: LACOSAMIDE
     Route: 065

REACTIONS (11)
  - Electrocardiogram QRS complex prolonged [Recovering/Resolving]
  - Intentional overdose [Unknown]
  - Toxicity to various agents [Unknown]
  - Suicide attempt [Unknown]
  - Acidosis [Recovering/Resolving]
  - Hypercapnia [Recovering/Resolving]
  - Electrocardiogram PR prolongation [Recovering/Resolving]
  - Focal dyscognitive seizures [Recovering/Resolving]
  - Generalised tonic-clonic seizure [Recovering/Resolving]
  - Ventricular tachycardia [Recovering/Resolving]
  - Cardiac arrest [Recovering/Resolving]
